FAERS Safety Report 19994825 (Version 1)
Quarter: 2021Q4

REPORT INFORMATION
  Report Type: Spontaneous
  Country: FR (occurrence: FR)
  Receive Date: 20211026
  Receipt Date: 20211026
  Transmission Date: 20220303
  Serious: Yes (Death)
  Sender: FDA-Public Use
  Company Number: None

PATIENT
  Age: 46 Year
  Sex: Male

DRUGS (10)
  1. ALPRAZOLAM [Suspect]
     Active Substance: ALPRAZOLAM
     Indication: Product used for unknown indication
     Dosage: NON RENSEIGN?E
     Route: 065
     Dates: end: 202106
  2. FLUVOXAMINE [Suspect]
     Active Substance: FLUVOXAMINE
     Indication: Product used for unknown indication
     Dosage: NON RENSEIGN?E
     Route: 065
     Dates: end: 202106
  3. HYDROXYZINE [Suspect]
     Active Substance: HYDROXYZINE HYDROCHLORIDE
     Indication: Product used for unknown indication
     Dosage: NON RENSEIGN?E
     Route: 065
     Dates: end: 202106
  4. HALOPERIDOL [Suspect]
     Active Substance: HALOPERIDOL
     Indication: Product used for unknown indication
     Dosage: NON RENSEIGN?E
     Route: 065
     Dates: end: 202106
  5. DIAZEPAM [Suspect]
     Active Substance: DIAZEPAM
     Indication: Product used for unknown indication
     Dosage: NON RENSEIGN?E
     Route: 065
     Dates: end: 202106
  6. CANRENOIC ACID [Suspect]
     Active Substance: CANRENOIC ACID
     Indication: Product used for unknown indication
     Dosage: NON RENSEIGN?E
     Route: 065
     Dates: end: 202106
  7. METHADONE [Suspect]
     Active Substance: METHADONE HYDROCHLORIDE
     Indication: Product used for unknown indication
     Dosage: NON RENSEIGN?E
     Route: 065
     Dates: end: 202106
  8. NORDAZEPAM [Suspect]
     Active Substance: NORDAZEPAM
     Indication: Product used for unknown indication
     Dosage: NON RENSEIGN?E
     Route: 065
     Dates: end: 202106
  9. OXAZEPAM [Suspect]
     Active Substance: OXAZEPAM
     Indication: Product used for unknown indication
     Dosage: NON RENSEIGN?E
     Route: 065
     Dates: end: 202106
  10. LOXAPINE SUCCINATE [Suspect]
     Active Substance: LOXAPINE SUCCINATE
     Indication: Product used for unknown indication
     Dosage: NON RENSEIGN?E
     Route: 065
     Dates: end: 202106

REACTIONS (2)
  - Respiratory depression [Fatal]
  - Cardiac failure acute [Fatal]

NARRATIVE: CASE EVENT DATE: 20210601
